FAERS Safety Report 24009445 (Version 1)
Quarter: 2024Q2

REPORT INFORMATION
  Report Type: Spontaneous
  Country: JP (occurrence: JP)
  Receive Date: 20240625
  Receipt Date: 20240625
  Transmission Date: 20240716
  Serious: Yes (Life-Threatening, Hospitalization, Other)
  Sender: FDA-Public Use
  Company Number: JP-SUN PHARMACEUTICAL INDUSTRIES LTD-2024R1-452415

PATIENT
  Sex: Male
  Weight: 3.1 kg

DRUGS (5)
  1. METHIMAZOLE [Suspect]
     Active Substance: METHIMAZOLE
     Indication: Graves^ disease
     Dosage: UNK (5 MG, EVERY OTHER DAY)
     Route: 064
  2. INSULIN ASPART [Suspect]
     Active Substance: INSULIN ASPART
     Indication: Blood glucose increased
     Dosage: UNK (3-3-3 UNITS)
     Route: 064
  3. INSULIN ASPART [Suspect]
     Active Substance: INSULIN ASPART
     Dosage: UNK (24-8-19 UNITS)
     Route: 064
  4. INSULIN DETEMIR [Suspect]
     Active Substance: INSULIN DETEMIR
     Indication: Blood glucose increased
     Dosage: UNK (0-0-0-3 UNITS)
     Route: 064
  5. INSULIN DETEMIR [Suspect]
     Active Substance: INSULIN DETEMIR
     Dosage: UNK (3-0-0-0 UNITS)
     Route: 064

REACTIONS (4)
  - Foetal exposure during pregnancy [Unknown]
  - Selective eating disorder [Recovering/Resolving]
  - Infantile apnoea [Recovering/Resolving]
  - Respiratory rate decreased [Recovering/Resolving]
